APPROVED DRUG PRODUCT: VOLTAREN ARTHRITIS PAIN
Active Ingredient: DICLOFENAC SODIUM
Strength: 1%
Dosage Form/Route: GEL;TOPICAL
Application: N022122 | Product #001
Applicant: HALEON US HOLDINGS LLC
Approved: Oct 17, 2007 | RLD: Yes | RS: Yes | Type: OTC